FAERS Safety Report 5838366-8 (Version None)
Quarter: 2008Q3

REPORT INFORMATION
  Report Type: 
  Country: None (occurrence: None)
  Receive Date: 20080808
  Receipt Date: 20080731
  Transmission Date: 20090109
  Serious: Yes (Other)
  Sender: FDA-Public Use
  Company Number: GB-AMGEN-US299417

PATIENT
  Age: 11 Year
  Sex: Female
  Weight: 28 kg

DRUGS (3)
  1. ENBREL [Suspect]
     Indication: JUVENILE ARTHRITIS
     Dosage: 12.5 MG FREQUENCY UNKNOWN
     Route: 058
     Dates: start: 20080101
  2. PREDNISOLONE [Concomitant]
     Indication: ARTHRITIS
     Dosage: 5 MG FREQUENCY UNKNOWN
     Route: 048
  3. FELDENE [Concomitant]
     Indication: ARTHRITIS
     Dosage: 10 MG FREQUENCY UNKNOWN
     Route: 048
     Dates: end: 20080401

REACTIONS (1)
  - ALANINE AMINOTRANSFERASE INCREASED [None]
